FAERS Safety Report 18283927 (Version 2)
Quarter: 2020Q3

REPORT INFORMATION
  Report Type: Spontaneous
  Country: US (occurrence: US)
  Receive Date: 20200918
  Receipt Date: 20200922
  Transmission Date: 20201103
  Serious: Yes (Other)
  Sender: FDA-Public Use
  Company Number: US-PFIZER INC-2020351270

PATIENT
  Sex: Female

DRUGS (2)
  1. PREMARIN [Suspect]
     Active Substance: ESTROGENS, CONJUGATED
     Dosage: 1 G, 2X/WEEK(INSERT 1 G INTO VAGINA DAILY. USE TWICE A WEEK)
     Route: 067
     Dates: start: 20200917
  2. PREMARIN [Suspect]
     Active Substance: ESTROGENS, CONJUGATED
     Dosage: 1 G, 2X/WEEK(INSERT 1 G INTO VAGINA DAILY. USE TWICE A WEEK)
     Route: 067

REACTIONS (4)
  - Macular degeneration [Unknown]
  - Eye disorder [Unknown]
  - Product prescribing error [Unknown]
  - Off label use [Unknown]
